FAERS Safety Report 9894813 (Version 4)
Quarter: 2014Q3

REPORT INFORMATION
  Report Type: Spontaneous
  Country: US (occurrence: US)
  Receive Date: 20140213
  Receipt Date: 20140811
  Transmission Date: 20150326
  Serious: Yes (Hospitalization, Other)
  Sender: FDA-Public Use
  Company Number: US-MERCK-1402USA004132

PATIENT
  Sex: Female
  Weight: 92.52 kg

DRUGS (2)
  1. FOSAMAX [Suspect]
     Active Substance: ALENDRONATE SODIUM
     Indication: OSTEOPOROSIS
     Dosage: 70 MG, QW
     Route: 048
     Dates: start: 20060222
  2. ALENDRONATE SODIUM. [Suspect]
     Active Substance: ALENDRONATE SODIUM
     Indication: OSTEOPOROSIS
     Dosage: 70 MG, UNK
     Route: 048
     Dates: start: 20080309, end: 20120902

REACTIONS (25)
  - Basal cell carcinoma [Unknown]
  - Incision site cellulitis [Recovering/Resolving]
  - Foot fracture [Unknown]
  - Cataract operation [Unknown]
  - Haematocrit decreased [Unknown]
  - Tearfulness [Unknown]
  - Femur fracture [Not Recovered/Not Resolved]
  - Cancer surgery [Unknown]
  - Skin neoplasm excision [Unknown]
  - Diverticulum [Unknown]
  - Anaemia postoperative [Unknown]
  - Leukocytosis [Recovered/Resolved]
  - Stress [Unknown]
  - Musculoskeletal pain [Unknown]
  - Pain in extremity [Unknown]
  - Femur fracture [Unknown]
  - Upper limb fracture [Unknown]
  - Osteopenia [Unknown]
  - Intraocular lens implant [Unknown]
  - Intramedullary rod insertion [Unknown]
  - Squamous cell carcinoma [Unknown]
  - Drug hypersensitivity [Unknown]
  - Lower limb fracture [Unknown]
  - Intervertebral disc degeneration [Unknown]
  - Constipation [Recovered/Resolved]

NARRATIVE: CASE EVENT DATE: 201209
